FAERS Safety Report 8250899-6 (Version None)
Quarter: 2012Q1

REPORT INFORMATION
  Report Type: 
  Country: None (occurrence: None)
  Receive Date: 20120328
  Receipt Date: 20120315
  Transmission Date: 20120608
  Serious: Yes (Other)
  Sender: FDA-Public Use
  Company Number: 2012MA002584

PATIENT
  Age: 76 Year
  Sex: Male

DRUGS (11)
  1. FYBOGEL [Concomitant]
  2. FRESUBIN [Concomitant]
  3. ASCAL-D3 [Concomitant]
  4. ACETAMINOPHEN [Concomitant]
  5. TAMSULOSIN HCL [Concomitant]
  6. SERTRALINE HYDROCHLORIDE [Suspect]
     Dates: start: 20120126
  7. PROSTEP [Concomitant]
  8. MORPHINE [Concomitant]
  9. THIAMINE HCL [Concomitant]
  10. OMEPRAZOLE [Concomitant]
  11. RAMIPRIL [Concomitant]

REACTIONS (1)
  - BLOOD POTASSIUM INCREASED [None]
